FAERS Safety Report 18005627 (Version 1)
Quarter: 2020Q3

REPORT INFORMATION
  Report Type: Spontaneous
  Country: US (occurrence: US)
  Receive Date: 20200709
  Receipt Date: 20200709
  Transmission Date: 20201103
  Serious: No
  Sender: FDA-Public Use
  Company Number: None

PATIENT
  Age: 74 Year
  Sex: Male
  Weight: 102.6 kg

DRUGS (16)
  1. ZOFRAN [Concomitant]
     Active Substance: ONDANSETRON HYDROCHLORIDE
     Dates: start: 20200612, end: 20200612
  2. PROPOTOL [Concomitant]
     Dates: start: 20200612, end: 20200623
  3. CEFTRIAXONE. [Concomitant]
     Active Substance: CEFTRIAXONE
     Dates: start: 20200612, end: 20200612
  4. ATRVASTIN [Concomitant]
     Dates: start: 20200612, end: 20200615
  5. HEPARIN [Concomitant]
     Active Substance: HEPARIN SODIUM
     Dates: start: 20200612, end: 20200613
  6. POTASSIUM CHLORIDE FLUID [Concomitant]
     Dates: start: 20200613, end: 20200613
  7. SODIUM CHLORIDE FLUID [Concomitant]
     Dates: start: 20200612, end: 20200614
  8. FENTANYL. [Concomitant]
     Active Substance: FENTANYL
     Dates: start: 20200612, end: 20200623
  9. ENOXAPARIN [Concomitant]
     Active Substance: ENOXAPARIN
     Dates: start: 20200612, end: 20200612
  10. REMDESIVIR. [Suspect]
     Active Substance: REMDESIVIR
  11. FAMOTIDINE. [Concomitant]
     Active Substance: FAMOTIDINE
     Dates: start: 20200612, end: 20200616
  12. PIPERACILLIN AND TAZOBACTAM [Concomitant]
     Active Substance: PIPERACILLIN SODIUM\TAZOBACTAM SODIUM
     Dates: start: 20200612, end: 20200615
  13. AZITHROMYCIN ANHYDROUS. [Concomitant]
     Active Substance: AZITHROMYCIN ANHYDROUS
     Dates: start: 20200612
  14. TYLENOL [Concomitant]
     Active Substance: ACETAMINOPHEN
     Dates: start: 20200612, end: 20200612
  15. CALQUENCE [Concomitant]
     Active Substance: ACALABRUTINIB
     Dates: start: 20200613, end: 20200615
  16. LASIX [Concomitant]
     Active Substance: FUROSEMIDE
     Dates: start: 20200613, end: 20200615

REACTIONS (2)
  - Glomerular filtration rate decreased [None]
  - Therapy cessation [None]

NARRATIVE: CASE EVENT DATE: 20200616
